FAERS Safety Report 9700124 (Version 1)
Quarter: 2013Q4

REPORT INFORMATION
  Report Type: Spontaneous
  Country: IT (occurrence: IT)
  Receive Date: 20131121
  Receipt Date: 20131121
  Transmission Date: 20140711
  Serious: Yes (Hospitalization)
  Sender: FDA-Public Use
  Company Number: IT-BRISTOL-MYERS SQUIBB COMPANY-19803709

PATIENT
  Age: 89 Year
  Sex: Female

DRUGS (5)
  1. COUMADIN [Suspect]
     Indication: CARDIAC FAILURE
     Route: 048
  2. LANOXIN [Suspect]
     Indication: ATRIAL FIBRILLATION
     Dosage: DOSE: 0.12 MG?TABS
  3. NORVASC [Concomitant]
     Dosage: TABS
  4. COTAREG [Concomitant]
  5. DILATREND [Concomitant]
     Dosage: TABS

REACTIONS (1)
  - Drug level increased [Recovering/Resolving]
